FAERS Safety Report 19484862 (Version 2)
Quarter: 2021Q3

REPORT INFORMATION
  Report Type: Spontaneous
  Country: IT (occurrence: IT)
  Receive Date: 20210701
  Receipt Date: 20210707
  Transmission Date: 20211014
  Serious: Yes (Other)
  Sender: FDA-Public Use
  Company Number: IT-SA-2021SA211332

PATIENT
  Age: 86 Year
  Sex: Female

DRUGS (2)
  1. TRIAMCINOLONE ACETONIDE. [Suspect]
     Active Substance: TRIAMCINOLONE ACETONIDE
     Indication: CHOROIDAL NEOVASCULARISATION
     Dosage: 4 MG
     Route: 031
  2. VERTEPORFIN [Concomitant]
     Active Substance: VERTEPORFIN
     Indication: CHOROIDAL NEOVASCULARISATION
     Dosage: UNK

REACTIONS (10)
  - Blindness unilateral [Unknown]
  - Visual acuity reduced [Unknown]
  - Serous retinal detachment [Unknown]
  - Chorioretinal folds [Unknown]
  - Retinal pigment epithelial tear [Unknown]
  - Retinal ischaemia [Unknown]
  - Vitreous haemorrhage [Unknown]
  - Retinal vascular disorder [Unknown]
  - Choroidal infarction [Unknown]
  - Retinal injury [Unknown]
